FAERS Safety Report 12725087 (Version 6)
Quarter: 2018Q1

REPORT INFORMATION
  Report Type: Spontaneous
  Country: US (occurrence: US)
  Receive Date: 20160908
  Receipt Date: 20180329
  Transmission Date: 20180508
  Serious: Yes (Other)
  Sender: FDA-Public Use
  Company Number: US-LUNDBECK-DKLU2018790

PATIENT
  Age: 66 Year
  Sex: Male

DRUGS (7)
  1. NORTHERA [Suspect]
     Active Substance: DROXIDOPA
     Route: 065
  2. NORTHERA [Suspect]
     Active Substance: DROXIDOPA
     Indication: PARKINSON^S DISEASE
     Dosage: TITRATION SCHEDULE A
     Route: 065
     Dates: start: 20160829
  3. NORTHERA [Suspect]
     Active Substance: DROXIDOPA
     Indication: SYNCOPE
     Route: 065
  4. NORTHERA [Suspect]
     Active Substance: DROXIDOPA
     Indication: DIZZINESS
     Dosage: SCHEDULE A AND TITRATING
     Route: 065
  5. NORTHERA [Suspect]
     Active Substance: DROXIDOPA
     Route: 065
  6. NORTHERA [Suspect]
     Active Substance: DROXIDOPA
     Indication: ORTHOSTATIC HYPOTENSION
     Route: 065
  7. NORTHERA [Suspect]
     Active Substance: DROXIDOPA
     Dosage: SCHEDULE A AND TITRATING
     Route: 065

REACTIONS (14)
  - Somnolence [Unknown]
  - Parkinson^s disease [Unknown]
  - Headache [Unknown]
  - Blood pressure fluctuation [Unknown]
  - Rash macular [Unknown]
  - Dizziness [Unknown]
  - Asthenia [Not Recovered/Not Resolved]
  - Loss of consciousness [Unknown]
  - Presyncope [Unknown]
  - Malaise [Unknown]
  - Pruritus [Unknown]
  - Blood pressure increased [Unknown]
  - Fatigue [Unknown]
  - Drug dose omission [Unknown]

NARRATIVE: CASE EVENT DATE: 20160830
